FAERS Safety Report 15935041 (Version 1)
Quarter: 2019Q1

REPORT INFORMATION
  Report Type: Spontaneous
  Country: US (occurrence: US)
  Receive Date: 20190207
  Receipt Date: 20190207
  Transmission Date: 20190417
  Serious: No
  Sender: FDA-Public Use
  Company Number: US-GILEAD-2019-0388172

PATIENT
  Age: 67 Year
  Sex: Male

DRUGS (2)
  1. VOSEVI [Suspect]
     Active Substance: SOFOSBUVIR\VELPATASVIR\VOXILAPREVIR
     Indication: HEPATITIS C
     Dosage: 1 DF
     Route: 048
     Dates: start: 201901
  2. MULTIVITAMIN (16) [Concomitant]
     Active Substance: VITAMINS

REACTIONS (1)
  - Headache [Recovered/Resolved]
